FAERS Safety Report 9183901 (Version 1)
Quarter: 2012Q4

REPORT INFORMATION
  Report Type: 
  Country: US (occurrence: US)
  Receive Date: 20121030
  Receipt Date: 20121030
  Transmission Date: 20130627
  Serious: No
  Sender: FDA-Public Use
  Company Number: US-009507513-1210USA011780

PATIENT

DRUGS (4)
  1. PEGINTRON [Suspect]
     Indication: HEPATITIS C
     Dosage: 150 micrograms weekly
     Route: 058
  2. TELAPREVIR [Concomitant]
  3. PROCRIT [Concomitant]
  4. RIBASPHERE [Concomitant]

REACTIONS (1)
  - Drug ineffective [Unknown]
